FAERS Safety Report 13188144 (Version 1)
Quarter: 2017Q1

REPORT INFORMATION
  Report Type: Spontaneous
  Country: US (occurrence: US)
  Receive Date: 20170206
  Receipt Date: 20170206
  Transmission Date: 20170428
  Serious: Yes (Other)
  Sender: FDA-Public Use
  Company Number: US-ASTELLAS-2016US041819

PATIENT
  Age: 75 Year
  Sex: Male

DRUGS (1)
  1. XTANDI [Suspect]
     Active Substance: ENZALUTAMIDE
     Indication: HORMONE-REFRACTORY PROSTATE CANCER
     Route: 048
     Dates: start: 201406

REACTIONS (9)
  - Gait disturbance [Unknown]
  - Constipation [Unknown]
  - Treatment noncompliance [Unknown]
  - Psoriatic arthropathy [Unknown]
  - Pain [Recovering/Resolving]
  - Abdominal pain [Recovering/Resolving]
  - Decreased appetite [Unknown]
  - Asthenia [Unknown]
  - Vertigo [Unknown]

NARRATIVE: CASE EVENT DATE: 20161020
